FAERS Safety Report 7595033-0 (Version None)
Quarter: 2011Q3

REPORT INFORMATION
  Report Type: 
  Country: None (occurrence: None)
  Receive Date: 20110707
  Receipt Date: 20110629
  Transmission Date: 20111222
  Serious: Yes (Hospitalization, Other)
  Sender: FDA-Public Use
  Company Number: FI-SANOFI-AVENTIS-2011SA041596

PATIENT
  Age: 60 Year
  Sex: Male

DRUGS (9)
  1. SOLOSTAR [Suspect]
     Dates: start: 20110501, end: 20110501
  2. SOLOSTAR [Suspect]
  3. APIDRA SOLOSTAR [Suspect]
     Route: 058
  4. APIDRA SOLOSTAR [Suspect]
     Dosage: DOSE:52 UNIT(S)
     Route: 058
     Dates: start: 20110501, end: 20110501
  5. SOLOSTAR [Suspect]
     Dates: end: 20110501
  6. LANTUS [Suspect]
     Dosage: DOSE:52 UNIT(S)
     Route: 058
     Dates: start: 20110501
  7. METFORMIN HCL [Concomitant]
     Route: 048
  8. LANTUS [Suspect]
     Dosage: DOSE:52 UNIT(S)
     Route: 058
     Dates: end: 20110501
  9. SOLOSTAR [Suspect]

REACTIONS (1)
  - WRONG DRUG ADMINISTERED [None]
